FAERS Safety Report 24012334 (Version 3)
Quarter: 2024Q3

REPORT INFORMATION
  Report Type: Spontaneous
  Country: CN (occurrence: CN)
  Receive Date: 20240625
  Receipt Date: 20240715
  Transmission Date: 20241017
  Serious: Yes (Hospitalization, Other)
  Sender: PFIZER
  Company Number: CN-PFIZER INC-PV202400081352

PATIENT
  Age: 74 Year
  Sex: Male

DRUGS (4)
  1. XALKORI [Suspect]
     Active Substance: CRIZOTINIB
     Dosage: 250 MG BID
     Route: 048
     Dates: start: 20231215
  2. THALIDOMIDE [Concomitant]
     Active Substance: THALIDOMIDE
  3. HERBALS\DIAMMONIUM GLYCYRRHIZINATE [Concomitant]
     Active Substance: HERBALS\DIAMMONIUM GLYCYRRHIZINATE
  4. TIAN QING GAN PING [Concomitant]

REACTIONS (43)
  - Chest discomfort [Recovering/Resolving]
  - Dyspnoea [Recovering/Resolving]
  - Decreased appetite [Recovering/Resolving]
  - Carcinoembryonic antigen increased [Unknown]
  - Pneumonitis [Unknown]
  - Pulmonary fibrosis [Unknown]
  - Pericardial effusion [Unknown]
  - Aortic arteriosclerosis [Unknown]
  - Arteriosclerosis coronary artery [Unknown]
  - Hepatic cirrhosis [Unknown]
  - Chronic obstructive pulmonary disease [Unknown]
  - Lymphocyte count decreased [Unknown]
  - Lymphocyte percentage decreased [Unknown]
  - Monocyte count increased [Unknown]
  - Monocyte percentage increased [Unknown]
  - Fibrin D dimer increased [Unknown]
  - Blood fibrinogen increased [Unknown]
  - Alanine aminotransferase increased [Unknown]
  - Aspartate aminotransferase increased [Unknown]
  - Gamma-glutamyltransferase increased [Unknown]
  - Blood alkaline phosphatase increased [Unknown]
  - Blood lactate dehydrogenase increased [Unknown]
  - Blood sodium decreased [Unknown]
  - Cystatin C increased [Unknown]
  - Bile acids increased [Unknown]
  - Blood albumin decreased [Unknown]
  - Blood creatinine increased [Unknown]
  - Blood calcium decreased [Unknown]
  - C-reactive protein increased [Unknown]
  - Glomerular filtration rate decreased [Unknown]
  - Cytokeratin 19 increased [Unknown]
  - Lymphadenopathy mediastinal [Unknown]
  - Neoplasm progression [Unknown]
  - Bronchitis chronic [Unknown]
  - Emphysema [Unknown]
  - Pulmonary calcification [Unknown]
  - Pleural effusion [Unknown]
  - Thyroid disorder [Unknown]
  - Hepatic cyst [Unknown]
  - Hepatic calcification [Unknown]
  - Renal cyst [Unknown]
  - Productive cough [Unknown]
  - Poor quality sleep [Unknown]

NARRATIVE: CASE EVENT DATE: 20240101
